FAERS Safety Report 6539017-X (Version None)
Quarter: 2010Q1

REPORT INFORMATION
  Report Type: 
  Country: None (occurrence: None)
  Receive Date: 20100115
  Receipt Date: 20100113
  Transmission Date: 20100710
  Serious: Yes (Death)
  Sender: FDA-Public Use
  Company Number: US-SANOFI-AVENTIS-2009SA010803

PATIENT
  Age: 73 Year
  Sex: Male

DRUGS (9)
  1. PLAVIX [Suspect]
     Route: 048
     Dates: start: 20070101, end: 20090925
  2. LISINOPRIL [Concomitant]
  3. COREG [Concomitant]
  4. HYDRALAZINE [Concomitant]
  5. POTASSIUM [Concomitant]
  6. LASIX [Concomitant]
  7. LOVASTATIN [Concomitant]
  8. ASPIRIN [Concomitant]
  9. PENTOXIFYLLINE [Concomitant]

REACTIONS (1)
  - DEATH [None]
